FAERS Safety Report 23881838 (Version 1)
Quarter: 2024Q2

REPORT INFORMATION
  Report Type: Spontaneous
  Country: MY (occurrence: MY)
  Receive Date: 20240521
  Receipt Date: 20240521
  Transmission Date: 20240715
  Serious: Yes (Hospitalization)
  Sender: FDA-Public Use
  Company Number: MY-NALPROPION PHARMACEUTICALS INC.-MY-2024CUR002454

PATIENT
  Age: 51 Year
  Sex: Female
  Weight: 106.7 kg

DRUGS (2)
  1. CONTRAVE [Suspect]
     Active Substance: BUPROPION HYDROCHLORIDE\NALTREXONE HYDROCHLORIDE
     Indication: Weight control
     Dosage: 1 DOSAGE FORM, QD
     Route: 065
     Dates: start: 20240329, end: 20240404
  2. CONTRAVE [Suspect]
     Active Substance: BUPROPION HYDROCHLORIDE\NALTREXONE HYDROCHLORIDE
     Dosage: 1 DOSAGE FORM, BID
     Route: 065
     Dates: start: 20240405, end: 20240419

REACTIONS (5)
  - Emotional distress [Unknown]
  - Crying [Unknown]
  - Glomerular filtration rate decreased [Unknown]
  - Dengue fever [Unknown]
  - Dizziness [Unknown]

NARRATIVE: CASE EVENT DATE: 20240329
